FAERS Safety Report 5828243-0 (Version None)
Quarter: 2008Q3

REPORT INFORMATION
  Report Type: 
  Country: None (occurrence: None)
  Receive Date: 20080729
  Receipt Date: 20080715
  Transmission Date: 20090109
  Serious: Yes (Death)
  Sender: FDA-Public Use
  Company Number: 2008US000900

PATIENT
  Age: 35 Day
  Sex: Female

DRUGS (11)
  1. AMBISOME [Suspect]
     Indication: CANDIDA SEPSIS
     Dosage: 5.6 MG, UID/QD,
     Dates: start: 20071211, end: 20071220
  2. CANCIDAS [Suspect]
     Indication: SEPSIS
     Dosage: 4 MG, UID/QD,
     Dates: start: 20071217, end: 20071220
  3. NEUPOGEN [Suspect]
     Indication: DRUG USE FOR UNKNOWN INDICATION
     Dosage: 7.5
     Dates: start: 20071217, end: 20071217
  4. VANCOMYCIN [Concomitant]
  5. FUROSEMIDE [Concomitant]
  6. MERONEM (MEROPENEM) [Concomitant]
  7. FLUCONAZOLE [Concomitant]
  8. RIFAMPICIN (RIFAMPICIN SODIUM) [Concomitant]
  9. FLAGYL [Concomitant]
  10. GENTAMYCIN (GENTAMYCIN) [Concomitant]
  11. IBUPROFEN [Concomitant]

REACTIONS (3)
  - CARDIAC FAILURE [None]
  - MYOCARDITIS [None]
  - VENTRICULAR SEPTAL DEFECT [None]
